FAERS Safety Report 11641090 (Version 1)
Quarter: 2015Q4

REPORT INFORMATION
  Report Type: Spontaneous
  Country: US (occurrence: US)
  Receive Date: 20151019
  Receipt Date: 20151019
  Transmission Date: 20160304
  Serious: No
  Sender: FDA-Public Use
  Company Number: US-ENDO PHARMACEUTICALS INC.-AMIT20140034

PATIENT
  Age: 72 Year
  Sex: Female
  Weight: 71.28 kg

DRUGS (12)
  1. AMITRIPTYLINE HCL 10MG [Suspect]
     Active Substance: AMITRIPTYLINE
     Route: 048
     Dates: start: 20141103
  2. IBUPROFEN TABLETS 200MG [Concomitant]
     Indication: HYPOAESTHESIA
  3. TYLENOL [Concomitant]
     Active Substance: ACETAMINOPHEN
     Indication: HYPOAESTHESIA
  4. PREDNISONE TABLETS [Concomitant]
     Active Substance: PREDNISONE
     Indication: RHEUMATOID ARTHRITIS
     Dosage: UNKNOWN
     Route: 048
  5. TYLENOL [Concomitant]
     Active Substance: ACETAMINOPHEN
     Indication: PERIPHERAL SWELLING
  6. TYLENOL [Concomitant]
     Active Substance: ACETAMINOPHEN
     Indication: PAIN IN EXTREMITY
     Dosage: UNKNOWN
     Route: 048
  7. HYDROCODONE BITARTRATE AND ACETAMINOPHEN [Concomitant]
     Active Substance: ACETAMINOPHEN\HYDROCODONE BITARTRATE
     Indication: MULTIPLE FRACTURES
     Dosage: 30MG/1300MG
     Route: 048
     Dates: start: 201408, end: 20141031
  8. IBUPROFEN TABLETS 200MG [Concomitant]
     Indication: PERIPHERAL SWELLING
  9. AMITRIPTYLINE HCL 10MG [Suspect]
     Active Substance: AMITRIPTYLINE
     Indication: PRODUCT USED FOR UNKNOWN INDICATION
     Route: 048
     Dates: start: 20141028, end: 20141102
  10. HYDROCORTISONE TABLETS [Concomitant]
     Active Substance: HYDROCORTISONE
     Indication: PAIN
     Dosage: UNKNOWN
     Route: 048
  11. HYDROCODONE BITARTRATE AND ACETAMINOPHEN [Concomitant]
     Active Substance: ACETAMINOPHEN\HYDROCODONE BITARTRATE
     Indication: PAIN
  12. IBUPROFEN TABLETS 200MG [Concomitant]
     Indication: PAIN IN EXTREMITY
     Route: 048

REACTIONS (1)
  - Drug effect decreased [Not Recovered/Not Resolved]

NARRATIVE: CASE EVENT DATE: 20141028
